FAERS Safety Report 23870500 (Version 3)
Quarter: 2025Q3

REPORT INFORMATION
  Report Type: Spontaneous
  Country: JP (occurrence: JP)
  Receive Date: 20240518
  Receipt Date: 20250717
  Transmission Date: 20251021
  Serious: Yes (Death, Other)
  Sender: ROCHE
  Company Number: JP-002147023-NVSJ2024JP003698

PATIENT
  Sex: Female

DRUGS (2)
  1. LUCENTIS [Suspect]
     Active Substance: RANIBIZUMAB
     Indication: Retinopathy of prematurity
     Route: 050
     Dates: start: 20230110
  2. LUCENTIS [Suspect]
     Active Substance: RANIBIZUMAB
     Route: 050
     Dates: start: 20230307, end: 20230307

REACTIONS (2)
  - Cardiac failure [Fatal]
  - Retinal vascular disorder [Unknown]
